FAERS Safety Report 4623158-8 (Version None)
Quarter: 2005Q1

REPORT INFORMATION
  Report Type: 
  Country: None (occurrence: None)
  Receive Date: 20050329
  Receipt Date: 20050311
  Transmission Date: 20050727
  Serious: No
  Sender: FDA-Public Use
  Company Number: 10569

PATIENT
  Age: 56 Year
  Sex: Male

DRUGS (1)
  1. FLUPHENAZINE [Suspect]

REACTIONS (1)
  - HYPERTHYROIDISM [None]
